FAERS Safety Report 4571246-7 (Version None)
Quarter: 2005Q1

REPORT INFORMATION
  Report Type: 
  Country: None (occurrence: None)
  Receive Date: 20050202
  Receipt Date: 20050120
  Transmission Date: 20050727
  Serious: Yes (Hospitalization)
  Sender: FDA-Public Use
  Company Number: 2005-BP-00897BP

PATIENT
  Age: 76 Year
  Sex: Male

DRUGS (2)
  1. CLONIDINE [Suspect]
     Indication: HYPERTENSION
     Dosage: 0.2 MG (0.1 MG, 0.1 MG Q 12 H), PO; 0.3 MG (0.1 MG, 0.1 MG TID), PO
     Route: 048
     Dates: start: 20040823, end: 20041025
  2. CLONIDINE [Suspect]
     Indication: HYPERTENSION
     Dosage: 0.2 MG (0.1 MG, 0.1 MG Q 12 H), PO; 0.3 MG (0.1 MG, 0.1 MG TID), PO
     Route: 048
     Dates: start: 20041029

REACTIONS (1)
  - TRANSIENT ISCHAEMIC ATTACK [None]
